FAERS Safety Report 6426434-1 (Version None)
Quarter: 2009Q4

REPORT INFORMATION
  Report Type: 
  Country: None (occurrence: None)
  Receive Date: 20091104
  Receipt Date: 20091027
  Transmission Date: 20100525
  Serious: Yes (Life-Threatening, Hospitalization, Other)
  Sender: FDA-Public Use
  Company Number: GB-ABBOTT-07P-167-0374196-00

PATIENT
  Sex: Male
  Weight: 85 kg

DRUGS (8)
  1. HUMIRA [Suspect]
     Indication: RHEUMATOID ARTHRITIS
     Route: 058
     Dates: start: 20060203, end: 20070615
  2. HUMIRA [Suspect]
  3. METHOTREXATE [Concomitant]
     Indication: RHEUMATOID ARTHRITIS
     Route: 048
     Dates: start: 20030801
  4. METHOTREXATE [Concomitant]
     Route: 048
     Dates: start: 19961118
  5. PREDNISOLONE [Concomitant]
     Indication: RHEUMATOID ARTHRITIS
     Route: 048
     Dates: start: 20051130
  6. PREDNISOLONE [Concomitant]
     Route: 048
     Dates: start: 19950115
  7. FOLIC ACID [Concomitant]
     Indication: RHEUMATOID ARTHRITIS
     Route: 048
     Dates: start: 20030801
  8. FOLIC ACID [Concomitant]
     Dosage: NOCTE
     Route: 048
     Dates: start: 19961118

REACTIONS (3)
  - PERITONITIS [None]
  - POST PROCEDURAL PULMONARY EMBOLISM [None]
  - PULMONARY EMBOLISM [None]
